FAERS Safety Report 16282341 (Version 1)
Quarter: 2019Q2

REPORT INFORMATION
  Report Type: Spontaneous
  Country: JP (occurrence: JP)
  Receive Date: 20190507
  Receipt Date: 20190507
  Transmission Date: 20190711
  Serious: Yes (Hospitalization, Other)
  Sender: FDA-Public Use
  Company Number: JP-PFIZER INC-2019182131

PATIENT
  Age: 5 Decade
  Sex: Female

DRUGS (3)
  1. CARERAM [Concomitant]
     Active Substance: IGURATIMOD
     Dosage: UNK
  2. FOLIC ACID. [Concomitant]
     Active Substance: FOLIC ACID
     Dosage: UNK
  3. RHEUMATREX [Suspect]
     Active Substance: METHOTREXATE SODIUM
     Dosage: 14 MG, UNK

REACTIONS (3)
  - Internal haemorrhage [Recovering/Resolving]
  - Menorrhagia [Recovering/Resolving]
  - Platelet count decreased [Recovering/Resolving]
